FAERS Safety Report 4718776-2 (Version None)
Quarter: 2005Q3

REPORT INFORMATION
  Report Type: 
  Country: None (occurrence: None)
  Receive Date: 20050719
  Receipt Date: 20041119
  Transmission Date: 20060218
  Serious: Yes (Hospitalization, Other)
  Sender: FDA-Public Use
  Company Number: 2004242583US

PATIENT
  Age: 70 Year
  Sex: Female
  Weight: 63.49 kg

DRUGS (11)
  1. CELEBREX [Suspect]
     Indication: RHEUMATOID ARTHRITIS
     Dosage: 200 MG (2 IN 1 D), ORAL
     Route: 048
     Dates: end: 20040101
  2. METHOTREXATE [Concomitant]
  3. PREDNISONE [Concomitant]
  4. IRBESARTAN [Concomitant]
  5. FOLINIC ACID 9FOLINIC ACID) [Concomitant]
  6. FOLIC ACID [Concomitant]
  7. NIFEDIPINE [Concomitant]
  8. HYDROCHLOROTHIAZIDE [Concomitant]
  9. OMEPRAZOLE [Concomitant]
  10. ROFECOXIB [Concomitant]
  11. ETANERCEPT (ETANERCEPT) [Concomitant]

REACTIONS (1)
  - CEREBROVASCULAR ACCIDENT [None]
